FAERS Safety Report 16965593 (Version 1)
Quarter: 2019Q4

REPORT INFORMATION
  Report Type: Spontaneous
  Country: US (occurrence: US)
  Receive Date: 20191027
  Receipt Date: 20191027
  Transmission Date: 20200122
  Serious: Yes (Disabling)
  Sender: FDA-Public Use
  Company Number: None

PATIENT
  Age: 38 Year
  Sex: Female
  Weight: 68.85 kg

DRUGS (1)
  1. VIVITROL [Suspect]
     Active Substance: NALTREXONE
     Indication: DRUG DEPENDENCE
     Dosage: ?          QUANTITY:1 INJECTION(S);OTHER FREQUENCY:30 DAYS;?
     Route: 030

REACTIONS (5)
  - Vomiting [None]
  - Injection site pain [None]
  - Headache [None]
  - Injection site warmth [None]
  - Injection site mass [None]

NARRATIVE: CASE EVENT DATE: 20191023
